FAERS Safety Report 5276063-0 (Version None)
Quarter: 2007Q1

REPORT INFORMATION
  Report Type: 
  Country: None (occurrence: None)
  Receive Date: 20070326
  Receipt Date: 20070313
  Transmission Date: 20070707
  Serious: Yes (Other)
  Sender: FDA-Public Use
  Company Number: PHBS2007BR04872

PATIENT
  Age: 52 Year
  Sex: Female

DRUGS (1)
  1. ESTRADOT [Suspect]
     Indication: HORMONE REPLACEMENT THERAPY
     Dosage: 50 MG
     Route: 062

REACTIONS (2)
  - CLAVICLE FRACTURE [None]
  - ROAD TRAFFIC ACCIDENT [None]
